FAERS Safety Report 4637546-7 (Version None)
Quarter: 2005Q1

REPORT INFORMATION
  Report Type: 
  Country: None (occurrence: None)
  Receive Date: 20050325
  Receipt Date: 20041130
  Transmission Date: 20050727
  Serious: No
  Sender: FDA-Public Use
  Company Number: USA041184465

PATIENT
  Age: 67 Year
  Sex: Female

DRUGS (3)
  1. FORTEO [Suspect]
     Indication: OSTEOPOROSIS
     Dosage: 20 UG/ 1 DAY
     Dates: start: 20041122
  2. ACTONEL [Concomitant]
  3. MIACALCIN (CALITONIN, SALMON) [Concomitant]

REACTIONS (3)
  - CHOLELITHIASIS [None]
  - DIZZINESS [None]
  - SOMNOLENCE [None]
